FAERS Safety Report 9947228 (Version 1)
Quarter: 2014Q1

REPORT INFORMATION
  Report Type: Report from Study
  Country: US (occurrence: US)
  Receive Date: 20140303
  Receipt Date: 20140303
  Transmission Date: 20141002
  Serious: No
  Sender: FDA-Public Use
  Company Number: US-ABBVIE-13P-163-1063895-00

PATIENT
  Age: 48 Year
  Sex: Female

DRUGS (4)
  1. HUMIRA [Suspect]
     Indication: ANKYLOSING SPONDYLITIS
     Dates: start: 20130225
  2. SULFASALAZINE [Concomitant]
     Indication: ARTHRITIS
  3. LISINOPRIL [Concomitant]
     Indication: BLOOD PRESSURE
  4. WELLBUTRIN [Concomitant]
     Indication: OBSESSIVE-COMPULSIVE DISORDER

REACTIONS (1)
  - Injection site pain [Unknown]
